FAERS Safety Report 22242729 (Version 1)
Quarter: 2023Q2

REPORT INFORMATION
  Report Type: Spontaneous
  Country: US (occurrence: US)
  Receive Date: 20230424
  Receipt Date: 20230424
  Transmission Date: 20230722
  Serious: Yes (Hospitalization, Other)
  Sender: FDA-Public Use
  Company Number: US-MYLANLABS-2023M1041559

PATIENT
  Age: 51 Year
  Sex: Female

DRUGS (7)
  1. PREDNISONE [Suspect]
     Active Substance: PREDNISONE
     Indication: Acute febrile neutrophilic dermatosis
     Dosage: UNK
     Route: 065
  2. DAPSONE [Concomitant]
     Active Substance: DAPSONE
     Indication: Acute febrile neutrophilic dermatosis
     Dosage: UNK
     Route: 065
  3. POTASSIUM IODIDE [Concomitant]
     Active Substance: POTASSIUM IODIDE
     Indication: Acute febrile neutrophilic dermatosis
     Dosage: UNK
     Route: 065
  4. COLCHICINE [Concomitant]
     Active Substance: COLCHICINE
     Indication: Acute febrile neutrophilic dermatosis
     Dosage: UNK
     Route: 065
  5. HYDROXYCHLOROQUINE [Concomitant]
     Active Substance: HYDROXYCHLOROQUINE
     Indication: Acute febrile neutrophilic dermatosis
     Dosage: UNK
     Route: 065
  6. SULFAPYRIDINE [Concomitant]
     Active Substance: SULFAPYRIDINE
     Indication: Acute febrile neutrophilic dermatosis
     Dosage: UNK
     Route: 065
  7. METHOTREXATE [Concomitant]
     Active Substance: METHOTREXATE
     Indication: Acute febrile neutrophilic dermatosis
     Dosage: UNK
     Route: 065

REACTIONS (7)
  - Rebound effect [Recovered/Resolved]
  - Condition aggravated [Recovered/Resolved]
  - Acute febrile neutrophilic dermatosis [Recovered/Resolved]
  - Spinal fracture [Unknown]
  - Osteopenia [Unknown]
  - Ecchymosis [Unknown]
  - Weight increased [Unknown]
